FAERS Safety Report 21554907 (Version 1)
Quarter: 2022Q4

REPORT INFORMATION
  Report Type: Report from Study
  Country: US (occurrence: US)
  Receive Date: 20221104
  Receipt Date: 20221104
  Transmission Date: 20230113
  Serious: No
  Sender: FDA-Public Use
  Company Number: US-ABBVIE-4185854

PATIENT
  Sex: Male

DRUGS (11)
  1. IMBRUVICA [Suspect]
     Active Substance: IBRUTINIB
     Indication: Chronic lymphocytic leukaemia
     Route: 048
     Dates: start: 20220909
  2. Rozerem Oral Tablet 8 MG [Concomitant]
     Indication: Product used for unknown indication
  3. Finasteride Oral Tablet 5 MG [Concomitant]
     Indication: Product used for unknown indication
  4. Zyloprim Oral Tablet 300 MG [Concomitant]
     Indication: Product used for unknown indication
  5. Lasix Oral Tablet 40 MG [Concomitant]
     Indication: Product used for unknown indication
  6. Eliquis Oral Tablet 2.5 MG [Concomitant]
     Indication: Product used for unknown indication
  7. Remeron Oral Tablet 30 MG [Concomitant]
     Indication: Product used for unknown indication
  8. Klor-Con M20 Oral Tablet Extended R [Concomitant]
     Indication: Product used for unknown indication
  9. Metoprolol Succinate ER Oral Tablet [Concomitant]
     Indication: Product used for unknown indication
  10. Synthroid Oral Tablet 50 MCG [Concomitant]
     Indication: Product used for unknown indication
  11. Protonix Oral Tablet Delayed Releas [Concomitant]
     Indication: Product used for unknown indication

REACTIONS (1)
  - Increased tendency to bruise [Not Recovered/Not Resolved]
